FAERS Safety Report 14191214 (Version 2)
Quarter: 2017Q4

REPORT INFORMATION
  Report Type: Report from Study
  Country: CA (occurrence: CA)
  Receive Date: 20171115
  Receipt Date: 20171124
  Transmission Date: 20180321
  Serious: Yes (Other)
  Sender: FDA-Public Use
  Company Number: CA-JNJFOC-20171004550

PATIENT
  Age: 34 Year
  Sex: Female

DRUGS (4)
  1. REMICADE [Suspect]
     Active Substance: INFLIXIMAB
     Indication: PSORIATIC ARTHROPATHY
     Route: 042
     Dates: start: 20171108
  2. REMICADE [Suspect]
     Active Substance: INFLIXIMAB
     Indication: PSORIATIC ARTHROPATHY
     Dosage: STRENGTH = 100 MG
     Route: 042
     Dates: start: 20160121
  3. BENADRYL [Concomitant]
     Active Substance: DIPHENHYDRAMINE HYDROCHLORIDE
     Indication: PREMEDICATION
     Route: 042
  4. METHOTREXATE. [Concomitant]
     Active Substance: METHOTREXATE
     Route: 048

REACTIONS (5)
  - Hyperhidrosis [Recovering/Resolving]
  - Dizziness [Recovered/Resolved]
  - Abdominal pain [Not Recovered/Not Resolved]
  - Infusion related reaction [Recovering/Resolving]
  - Haematochezia [Recovered/Resolved]

NARRATIVE: CASE EVENT DATE: 20171004
